FAERS Safety Report 17728526 (Version 1)
Quarter: 2020Q2

REPORT INFORMATION
  Report Type: Spontaneous
  Country: AT (occurrence: AT)
  Receive Date: 20200430
  Receipt Date: 20200430
  Transmission Date: 20200714
  Serious: Yes (Death, Life-Threatening, Hospitalization, Other)
  Sender: FDA-Public Use
  Company Number: AT-AMGEN-AUTSP2020068022

PATIENT
  Age: 60 Year
  Sex: Male

DRUGS (8)
  1. CYCLOPHOSPHAMIDE. [Concomitant]
     Active Substance: CYCLOPHOSPHAMIDE
     Indication: SPLENIC MARGINAL ZONE LYMPHOMA
     Dosage: UNK UNK, CYCLICAL
     Route: 065
  2. CLOPIDOGREL [Concomitant]
     Active Substance: CLOPIDOGREL BISULFATE
     Dosage: UNK
     Route: 065
  3. DOXORUBICIN [Concomitant]
     Active Substance: DOXORUBICIN
     Indication: SPLENIC MARGINAL ZONE LYMPHOMA
     Dosage: UNK UNK, CYCLICAL
     Route: 065
  4. FILGRASTIM [Suspect]
     Active Substance: FILGRASTIM
     Indication: PRODUCT USED FOR UNKNOWN INDICATION
     Dosage: UNK (2X3O MIO U)
     Route: 065
  5. VINCRISTINE SULFATE. [Concomitant]
     Active Substance: VINCRISTINE SULFATE
     Indication: SPLENIC MARGINAL ZONE LYMPHOMA
     Dosage: UNK UNK, CYCLICAL
     Route: 065
  6. ACETYLSALICYLIC ACID [Concomitant]
     Active Substance: ASPIRIN
     Route: 065
  7. RITUXIMAB. [Concomitant]
     Active Substance: RITUXIMAB
     Indication: SPLENIC MARGINAL ZONE LYMPHOMA
     Dosage: UNK UNK, CYCLICAL
     Route: 065
  8. PREDNISONE. [Concomitant]
     Active Substance: PREDNISONE
     Indication: SPLENIC MARGINAL ZONE LYMPHOMA
     Dosage: UNK UNK, CYCLICAL
     Route: 065

REACTIONS (5)
  - Herpes simplex encephalitis [Fatal]
  - Febrile neutropenia [Unknown]
  - Ischaemic stroke [Unknown]
  - Central nervous system vasculitis [Fatal]
  - Lymphopenia [Unknown]
